FAERS Safety Report 8523917-5 (Version None)
Quarter: 2012Q3

REPORT INFORMATION
  Report Type: 
  Country: None (occurrence: None)
  Receive Date: 20120720
  Receipt Date: 20120704
  Transmission Date: 20120928
  Serious: Yes (Hospitalization, Other)
  Sender: FDA-Public Use
  Company Number: ES-009507513-2012SP012637

PATIENT

DRUGS (3)
  1. POLARAMINE [Suspect]
     Indication: MEDICAL DIET
     Dosage: 1 MG, BID
     Route: 048
     Dates: start: 20120305, end: 20120310
  2. NASONEX [Suspect]
     Indication: RHINITIS ALLERGIC
     Dosage: 1 PUFF IN EACH NOSTRIL PER DAY
     Route: 045
     Dates: start: 20120305, end: 20120101
  3. FOLIC ACID [Concomitant]
     Indication: MEDICAL DIET
     Dosage: GESTAGYN  DURING PREGNANCY
     Route: 048
     Dates: start: 20110101, end: 20120101

REACTIONS (5)
  - DERMATITIS [None]
  - MATERNAL EXPOSURE DURING PREGNANCY [None]
  - HAEMORRHAGIC ANAEMIA [None]
  - CAESAREAN SECTION [None]
  - POSTPARTUM HAEMORRHAGE [None]
